FAERS Safety Report 4349760-9 (Version None)
Quarter: 2004Q2

REPORT INFORMATION
  Report Type: 
  Country: None (occurrence: None)
  Receive Date: 20040428
  Receipt Date: 20040426
  Transmission Date: 20050107
  Serious: Yes (Death, Other)
  Sender: FDA-Public Use
  Company Number: 04-04-0599

PATIENT
  Sex: Male

DRUGS (5)
  1. BACLOFEN [Suspect]
     Dosage: 5MG TID
  2. ASPIRIN [Concomitant]
  3. TRIMETHOPRIM [Concomitant]
  4. ALBUTEROL SULFATE [Concomitant]
  5. OXYBUTYNIN [Concomitant]

REACTIONS (5)
  - CEREBROVASCULAR ACCIDENT [None]
  - COMA [None]
  - MUSCULOSKELETAL STIFFNESS [None]
  - RENAL IMPAIRMENT [None]
  - SUDDEN DEATH [None]
